FAERS Safety Report 6658665-X (Version None)
Quarter: 2010Q1

REPORT INFORMATION
  Report Type: 
  Country: None (occurrence: None)
  Receive Date: 20100330
  Receipt Date: 20090302
  Transmission Date: 20100710
  Serious: Yes (Disabling)
  Sender: FDA-Public Use
  Company Number: US-GENENTECH-299799

PATIENT
  Sex: Female
  Weight: 93.878 kg

DRUGS (16)
  1. XOLAIR [Suspect]
     Indication: ASTHMA
     Dosage: 300 MG, Q4W
     Dates: start: 20090629
  2. ADVAIR DISKUS 100/50 [Concomitant]
     Indication: ASTHMA
     Dosage: 500 MG, BID
     Dates: start: 20020101
  3. ADVAIR DISKUS 100/50 [Concomitant]
     Indication: HYPERSENSITIVITY
  4. SPIRIVA [Concomitant]
     Indication: CHRONIC OBSTRUCTIVE PULMONARY DISEASE
     Dosage: 118 MG, QD
     Dates: start: 20050101
  5. SPIRIVA [Concomitant]
     Indication: ASTHMA
  6. SINGULAIR [Concomitant]
     Indication: ASTHMA
     Dosage: 10 MG, QD
     Route: 048
     Dates: start: 20000101
  7. ALLEGRA [Concomitant]
     Indication: ASTHMA
     Dosage: 180 MG, QD
     Route: 048
     Dates: start: 20000101
  8. ASPIRIN [Concomitant]
     Indication: ANTICOAGULANT THERAPY
     Dosage: 325 MG, QD
     Route: 048
     Dates: start: 20050101
  9. PRILOSEC [Concomitant]
     Indication: GASTROOESOPHAGEAL REFLUX DISEASE
     Dosage: 20 MG, BID
     Route: 048
     Dates: start: 19990101
  10. REQUIP [Concomitant]
     Indication: RESTLESS LEGS SYNDROME
     Dosage: 1 MG, QD
     Route: 048
     Dates: start: 20050101
  11. PREDNISONE [Concomitant]
     Indication: ASTHMA
     Dosage: 5 MG, QD
     Route: 048
     Dates: start: 19950101
  12. XANAX [Concomitant]
     Indication: ANXIETY
     Dosage: 0.25 MG, PRN
     Route: 048
     Dates: start: 20060101
  13. ALBUTEROL [Concomitant]
     Indication: ASTHMA
     Dosage: UNK
     Dates: start: 19960101
  14. GLIPIZIDE [Concomitant]
     Indication: BLOOD GLUCOSE INCREASED
     Dosage: 5 MG, PRN
     Route: 048
     Dates: start: 20080101
  15. CARDIZEM [Concomitant]
     Indication: HYPERTENSION
     Dosage: 180 MG, QD
     Route: 048
     Dates: start: 20060101
  16. CITALOPRAM HYDROBROMIDE [Concomitant]
     Indication: DEPRESSION
     Dosage: 20 MG, QD
     Route: 048
     Dates: start: 20080101

REACTIONS (2)
  - RESPIRATORY DISORDER [None]
  - SKIN REACTION [None]
